FAERS Safety Report 10540266 (Version 1)
Quarter: 2014Q4

REPORT INFORMATION
  Report Type: Spontaneous
  Country: JP (occurrence: None)
  Receive Date: 20141022
  Receipt Date: 20141022
  Transmission Date: 20150529
  Serious: Yes (Death, Hospitalization, Other)
  Sender: FDA-Public Use
  Company Number: 2009JP007518

PATIENT
  Age: 54 Year
  Sex: Male

DRUGS (1)
  1. PROGRAF [Suspect]
     Active Substance: TACROLIMUS\TACROLIMUS ANHYDROUS
     Indication: LIVER TRANSPLANT
     Route: 048

REACTIONS (6)
  - Renal impairment [None]
  - Disseminated intravascular coagulation [None]
  - Metabolic disorder [None]
  - Multi-organ failure [None]
  - Post transplant lymphoproliferative disorder [None]
  - Lactic acidosis [None]
